FAERS Safety Report 6106853-3 (Version None)
Quarter: 2009Q1

REPORT INFORMATION
  Report Type: 
  Country: None (occurrence: None)
  Receive Date: 20090304
  Receipt Date: 20090217
  Transmission Date: 20090719
  Serious: Yes (Life-Threatening, Hospitalization)
  Sender: FDA-Public Use
  Company Number: 2008003238

PATIENT
  Age: 53 Year
  Sex: Male

DRUGS (4)
  1. TARCEVA [Suspect]
     Indication: NON-SMALL CELL LUNG CANCER STAGE IV
     Dosage: (150 MG, QD) ,ORAL
     Route: 048
     Dates: start: 20081030, end: 20081127
  2. LANSOPRAZOLE [Suspect]
  3. LYRICA [Suspect]
  4. AMLODIPINE BESYLATE [Suspect]

REACTIONS (4)
  - ACNE [None]
  - CHOLECYSTITIS ACUTE [None]
  - GALLBLADDER PERFORATION [None]
  - PERITONITIS [None]
